FAERS Safety Report 8513000-7 (Version None)
Quarter: 2012Q3

REPORT INFORMATION
  Report Type: 
  Country: None (occurrence: None)
  Receive Date: 20120705
  Receipt Date: 20120626
  Transmission Date: 20120928
  Serious: Yes (Other)
  Sender: FDA-Public Use
  Company Number: 2012-2912

PATIENT
  Age: 64 Year
  Sex: Female

DRUGS (1)
  1. DYSPORT [Suspect]
     Indication: BLEPHAROSPASM
     Dosage: 300 UNITS, ONCE EVERY 4 MONTHS (300 UNITS,1 IN 1 4 M),SUBCUTANEOUS
     Route: 058

REACTIONS (5)
  - ASTHENIA [None]
  - WRIST FRACTURE [None]
  - FALL [None]
  - VISION BLURRED [None]
  - BALANCE DISORDER [None]
